FAERS Safety Report 6322850-7 (Version None)
Quarter: 2009Q3

REPORT INFORMATION
  Report Type: 
  Country: None (occurrence: None)
  Receive Date: 20090820
  Receipt Date: 20090701
  Transmission Date: 20100115
  Serious: Yes (Hospitalization)
  Sender: FDA-Public Use
  Company Number: 090701-000054

PATIENT
  Sex: Female

DRUGS (1)
  1. M1 SPF 3-5%, MEANINGFUL BEAUTY, GUTHY-RENKER [Suspect]
     Indication: SKIN DISORDER
     Dosage: PER LABEL, TOPICAL
     Route: 061
     Dates: start: 20090615, end: 20090627

REACTIONS (6)
  - ERYTHEMA [None]
  - EYE SWELLING [None]
  - RESPIRATORY DISORDER [None]
  - SKIN EXFOLIATION [None]
  - SWELLING [None]
  - SWOLLEN TONGUE [None]
